FAERS Safety Report 5209101-1 (Version None)
Quarter: 2007Q1

REPORT INFORMATION
  Report Type: 
  Country: None (occurrence: None)
  Receive Date: 20070116
  Receipt Date: 20070103
  Transmission Date: 20070707
  Serious: Yes (Hospitalization)
  Sender: FDA-Public Use
  Company Number: 2007GB00007

PATIENT
  Sex: Male

DRUGS (3)
  1. CRESTOR [Suspect]
     Indication: HYPERCHOLESTEROLAEMIA
     Route: 048
     Dates: start: 20061003, end: 20061104
  2. CRESTOR [Suspect]
     Route: 048
     Dates: start: 20061105
  3. EZETIMIBE [Concomitant]
     Indication: HYPERCHOLESTEROLAEMIA

REACTIONS (3)
  - BLOOD CHOLESTEROL DECREASED [None]
  - HYPERKALAEMIA [None]
  - PANCREATITIS [None]
